FAERS Safety Report 5190547-5 (Version None)
Quarter: 2006Q4

REPORT INFORMATION
  Report Type: 
  Country: None (occurrence: None)
  Receive Date: 20061222
  Receipt Date: 20060327
  Transmission Date: 20070319
  Serious: No
  Sender: FDA-Public Use
  Company Number: US-BRISTOL-MYERS SQUIBB COMPANY-13330477

PATIENT
  Age: 52 Year
  Sex: Female

DRUGS (1)
  1. QUESTRAN [Suspect]
     Indication: DIARRHOEA
     Dosage: DOSAGE FORM = SCOOP
     Route: 048
     Dates: end: 20050101

REACTIONS (6)
  - AGEUSIA [None]
  - ANOSMIA [None]
  - GINGIVAL SWELLING [None]
  - LYMPHADENOPATHY [None]
  - NIGHT BLINDNESS [None]
  - ORAL DISCOMFORT [None]
